FAERS Safety Report 7424109-3 (Version None)
Quarter: 2011Q2

REPORT INFORMATION
  Report Type: 
  Country: None (occurrence: None)
  Receive Date: 20110411
  Receipt Date: 20110405
  Transmission Date: 20111010
  Serious: Yes (Other)
  Sender: FDA-Public Use
  Company Number: WAES 1104USA00511

PATIENT
  Age: 49 Year
  Sex: Male

DRUGS (5)
  1. ISENTRESS [Suspect]
     Indication: HIV INFECTION
     Dates: start: 20090922, end: 20091024
  2. NORVIR [Concomitant]
  3. VIREAD [Suspect]
     Indication: HIV INFECTION
     Dosage: PO
     Route: 048
     Dates: start: 20090922, end: 20091024
  4. BACTRIM [Concomitant]
  5. PREZISTA [Suspect]
     Dates: start: 20090922, end: 20091024

REACTIONS (12)
  - ALANINE AMINOTRANSFERASE INCREASED [None]
  - ASPARTATE AMINOTRANSFERASE INCREASED [None]
  - BLOOD BILIRUBIN INCREASED [None]
  - SKIN EXFOLIATION [None]
  - GAMMA-GLUTAMYLTRANSFERASE INCREASED [None]
  - HYPERSENSITIVITY [None]
  - BODY TEMPERATURE INCREASED [None]
  - GENERALISED ERYTHEMA [None]
  - BLOOD ALKALINE PHOSPHATASE INCREASED [None]
  - RASH MACULO-PAPULAR [None]
  - UPPER RESPIRATORY TRACT CONGESTION [None]
  - BILIRUBIN CONJUGATED INCREASED [None]
